FAERS Safety Report 7639211-0 (Version None)
Quarter: 2011Q3

REPORT INFORMATION
  Report Type: 
  Country: None (occurrence: None)
  Receive Date: 20110721
  Receipt Date: 20110718
  Transmission Date: 20111222
  Serious: Yes (Death, Other)
  Sender: FDA-Public Use
  Company Number: GB-002349

PATIENT
  Age: 36 Year
  Sex: Male

DRUGS (20)
  1. ACETAMINOPHEN [Concomitant]
  2. CHLORDIAZEPOXIDE [Concomitant]
  3. LANSOPRAZOLE [Concomitant]
  4. LORAZEPAM [Concomitant]
  5. BENZONATATE [Concomitant]
  6. TEMAZEPAM [Concomitant]
  7. LITHIUM [Concomitant]
  8. METOCLOPRAMIDE [Concomitant]
  9. TRAZODONE HCL [Suspect]
  10. VENLAFAXINE [Suspect]
     Dosage: 300 MG QD
  11. ENALAPRIL MALEATE [Concomitant]
  12. TRAMADOL HCL [Suspect]
  13. DOCUSATE SODIUM [Concomitant]
  14. FAMOTIDINE [Concomitant]
  15. RANITIDINE [Concomitant]
  16. FOLIC ACID [Concomitant]
  17. METOPROLOL TARTRATE [Concomitant]
  18. VITAMIN B COMPLEX CAP [Concomitant]
  19. QUETIAPINE FUMARATE [Suspect]
  20. FUROSEMIDE [Concomitant]

REACTIONS (18)
  - DEHYDRATION [None]
  - EXCORIATION [None]
  - HYPERTENSION [None]
  - TREMOR [None]
  - HEPATIC STEATOSIS [None]
  - NAUSEA [None]
  - ASTHENIA [None]
  - VOMITING [None]
  - TONGUE HAEMORRHAGE [None]
  - CONVULSION [None]
  - LACERATION [None]
  - HYPERHIDROSIS [None]
  - ALCOHOL WITHDRAWAL SYNDROME [None]
  - CONTUSION [None]
  - CORONARY ARTERY STENOSIS [None]
  - DIARRHOEA [None]
  - EMPHYSEMA [None]
  - HYPERKALAEMIA [None]
